FAERS Safety Report 10191961 (Version 1)
Quarter: 2014Q2

REPORT INFORMATION
  Report Type: Spontaneous
  Country: TR (occurrence: TR)
  Receive Date: 20140523
  Receipt Date: 20140523
  Transmission Date: 20141212
  Serious: Yes (Other)
  Sender: FDA-Public Use
  Company Number: TR-BAYER-2014-073881

PATIENT
  Age: 27 Year
  Sex: Female

DRUGS (6)
  1. NIFEDIPINE [Suspect]
     Indication: HYPERTENSION
     Dosage: 10 MG, ONCE
     Route: 060
  2. NIFEDIPINE [Suspect]
     Indication: HYPERTENSION
     Dosage: 10 MG, TID
  3. NIFEDIPINE [Suspect]
     Indication: HYPERTENSION
     Dosage: 60 MG, CONTROLLED-RELEASE
  4. ALFAMETILDOPA [Concomitant]
     Dosage: 250 MG, QID
  5. ALFAMETILDOPA [Concomitant]
     Dosage: 500 MG, QID
  6. MGSO4 [Concomitant]
     Dosage: 2 GRAM/HOUR INFUSION 24 HOURS
     Route: 042

REACTIONS (4)
  - Posterior reversible encephalopathy syndrome [Recovered/Resolved]
  - Caesarean section [None]
  - Exposure during pregnancy [None]
  - Drug ineffective [None]
